FAERS Safety Report 7439965-2 (Version None)
Quarter: 2011Q2

REPORT INFORMATION
  Report Type: 
  Country: None (occurrence: None)
  Receive Date: 20110427
  Receipt Date: 20100921
  Transmission Date: 20111010
  Serious: No
  Sender: FDA-Public Use
  Company Number: US-BAYER-201034411NA

PATIENT
  Age: 71 Year
  Sex: Female

DRUGS (4)
  1. CYCLOPHOSPHAMIDE [Concomitant]
     Dosage: 1 CYCLE
  2. LEUKINE [Suspect]
     Indication: LYMPHOMA
     Dosage: 400 ?G, UNK
     Route: 058
     Dates: start: 20100904
  3. DOXORUBICIN [Concomitant]
     Dosage: 1 CYCLE
  4. INCRUSTING (NOS) [Concomitant]
     Dosage: 1 CYCLE

REACTIONS (2)
  - TACHYCARDIA [None]
  - DISCOMFORT [None]
